FAERS Safety Report 12502403 (Version 2)
Quarter: 2016Q3

REPORT INFORMATION
  Report Type: Report from Study
  Country: DE (occurrence: CL)
  Receive Date: 20160627
  Receipt Date: 20160729
  Transmission Date: 20161109
  Serious: Yes (Hospitalization, Other)
  Sender: FDA-Public Use
  Company Number: DE-ACTELION-A-NJ2016-136795

PATIENT
  Age: 56 Year
  Sex: Female

DRUGS (10)
  1. NEO-SINTROM [Concomitant]
     Active Substance: ACENOCOUMAROL
  2. ESOMEPRAZOLE [Concomitant]
     Active Substance: ESOMEPRAZOLE
  3. TRACLEER [Concomitant]
     Active Substance: BOSENTAN
  4. NEBIVOLOL. [Concomitant]
     Active Substance: NEBIVOLOL
  5. SPIRONOLACTONE. [Concomitant]
     Active Substance: SPIRONOLACTONE
  6. VENTAVIS [Suspect]
     Active Substance: ILOPROST
     Indication: PULMONARY HYPERTENSION
     Dosage: 0.5 ML, 8/D
     Route: 055
     Dates: start: 20151211
  7. DIGENIL [Concomitant]
  8. SPIRIVA [Concomitant]
     Active Substance: TIOTROPIUM BROMIDE MONOHYDRATE
  9. SILDENAFIL. [Concomitant]
     Active Substance: SILDENAFIL
  10. CLONAZEPAM. [Concomitant]
     Active Substance: CLONAZEPAM

REACTIONS (12)
  - Hepatic cyst [Unknown]
  - Cardiac pacemaker insertion [Recovering/Resolving]
  - Bradycardia [Recovering/Resolving]
  - Peripheral swelling [Recovering/Resolving]
  - Pain in extremity [Recovering/Resolving]
  - Pulmonary hypertension [Recovered/Resolved]
  - Oedema peripheral [Recovering/Resolving]
  - Drug-induced liver injury [Not Recovered/Not Resolved]
  - Bile duct stone [Unknown]
  - Tachycardia [Recovering/Resolving]
  - Influenza [Recovering/Resolving]
  - Abdominal pain upper [Not Recovered/Not Resolved]

NARRATIVE: CASE EVENT DATE: 20160513
